FAERS Safety Report 14064340 (Version 1)
Quarter: 2017Q4

REPORT INFORMATION
  Report Type: Spontaneous
  Country: IT (occurrence: IT)
  Receive Date: 20171009
  Receipt Date: 20171009
  Transmission Date: 20180321
  Serious: Yes (Other)
  Sender: FDA-Public Use
  Company Number: IT-PFIZER INC-2017429723

PATIENT
  Age: 73 Year
  Sex: Male

DRUGS (2)
  1. BIVIS [Suspect]
     Active Substance: AMLODIPINE BESYLATE\OLMESARTAN MEDOXOMIL
     Indication: HYPERTENSION
     Dosage: UNK, DAILY
     Route: 048
     Dates: start: 20160101, end: 20161116
  2. VIAGRA [Suspect]
     Active Substance: SILDENAFIL CITRATE
     Indication: ERECTILE DYSFUNCTION
     Dosage: TOTAL
     Route: 048
     Dates: start: 20161116, end: 20161116

REACTIONS (4)
  - Hyperhidrosis [Unknown]
  - Incontinence [Unknown]
  - Loss of consciousness [Unknown]
  - Malaise [Unknown]

NARRATIVE: CASE EVENT DATE: 20161116
